FAERS Safety Report 9458584 (Version 1)
Quarter: 2013Q3

REPORT INFORMATION
  Report Type: Spontaneous
  Country: US (occurrence: None)
  Receive Date: 20130813
  Receipt Date: 20130813
  Transmission Date: 20140515
  Serious: Yes (Other)
  Sender: FDA-Public Use
  Company Number: None

PATIENT
  Age: 50 Year
  Sex: Male
  Weight: 90 kg

DRUGS (5)
  1. LAPATINIB [Suspect]
     Indication: OESOPHAGEAL CARCINOMA
     Dosage: 1000MG DAILY ORAL
     Route: 048
     Dates: start: 20130408, end: 20130808
  2. PRILOSEC [Concomitant]
  3. METOPROLOL [Concomitant]
  4. COMPAZINE [Concomitant]
  5. DEXAMETHASONE [Concomitant]

REACTIONS (4)
  - Vision blurred [None]
  - Retinal haemorrhage [None]
  - Retinal vascular disorder [None]
  - Toxicity to various agents [None]
